FAERS Safety Report 12417637 (Version 8)
Quarter: 2020Q3

REPORT INFORMATION
  Report Type: Report from Study
  Country: BR (occurrence: BR)
  Receive Date: 20160530
  Receipt Date: 20190215
  Transmission Date: 20201104
  Serious: Yes (Other)
  Sender: FDA-Public Use
  Company Number: PHHY2016BR074009

PATIENT
  Age: 71 Year
  Sex: Female
  Weight: 80 kg

DRUGS (16)
  1. GILENYA [Suspect]
     Active Substance: FINGOLIMOD HYDROCHLORIDE
     Dosage: UNK, QOD
     Route: 048
  2. DEPURA [Concomitant]
     Active Substance: CHOLECALCIFEROL
     Indication: PRODUCT USED FOR UNKNOWN INDICATION
     Dosage: 2 DF, UNK
     Route: 065
  3. VITAMIN D2 [Concomitant]
     Active Substance: ERGOCALCIFEROL
     Indication: RHEUMATIC DISORDER
     Dosage: UNK
     Route: 065
  4. GILENYA [Suspect]
     Active Substance: FINGOLIMOD HYDROCHLORIDE
     Dosage: 0.5 MG, QW3
     Route: 048
     Dates: start: 201801, end: 201803
  5. MACRODANTIN [Suspect]
     Active Substance: NITROFURANTOIN
     Indication: URINARY TRACT INFECTION
     Route: 065
  6. GILENYA [Suspect]
     Active Substance: FINGOLIMOD HYDROCHLORIDE
     Dosage: 0.5 MG, QW3
     Route: 048
     Dates: start: 201510
  7. FINGOLIMOD. [Suspect]
     Active Substance: FINGOLIMOD
     Indication: PRODUCT USED FOR UNKNOWN INDICATION
     Route: 065
  8. OMEPRAZOLE. [Concomitant]
     Active Substance: OMEPRAZOLE
     Indication: PROPHYLAXIS
     Dosage: 1 DF (20 MG), QD (IN THE MORNING)
     Route: 048
  9. GILENYA [Suspect]
     Active Substance: FINGOLIMOD HYDROCHLORIDE
     Indication: MULTIPLE SCLEROSIS
     Dosage: 0.5 MG, QD
     Route: 048
     Dates: start: 201411, end: 201510
  10. OMEPRAZOLE. [Concomitant]
     Active Substance: OMEPRAZOLE
     Indication: GASTRIC DISORDER
  11. CHLORTHALIDONE. [Concomitant]
     Active Substance: CHLORTHALIDONE
     Indication: URINARY TRACT DISORDER
     Dosage: 1 DF, QD (AT 08:00 AM)
     Route: 065
  12. DILTIAZEM. [Concomitant]
     Active Substance: DILTIAZEM
     Indication: CARDIAC DISORDER
     Dosage: 1 DF, BID (1 TABLET AT 08:00 AM AND 1 AT 08:00 PM)
     Route: 005
  13. GILENYA [Suspect]
     Active Substance: FINGOLIMOD HYDROCHLORIDE
     Dosage: 0.5 MG, QW3
     Route: 048
  14. TRAYENTA [Concomitant]
     Active Substance: LINAGLIPTIN
     Indication: DIABETES MELLITUS
     Dosage: 1 DF, QD (AT 08:00 AM)
     Route: 065
  15. OLMETEC [Concomitant]
     Active Substance: OLMESARTAN MEDOXOMIL
     Indication: BLOOD PRESSURE ABNORMAL
     Dosage: 0.5 DF, Q12H (MORNING AND NIGHT)
     Route: 065
  16. CHLORTHALIDONE. [Concomitant]
     Active Substance: CHLORTHALIDONE
     Indication: DIURETIC THERAPY

REACTIONS (66)
  - Cough [Unknown]
  - Asthenia [Unknown]
  - Facial bones fracture [Recovered/Resolved]
  - Eyelid disorder [Unknown]
  - Decreased interest [Unknown]
  - Insomnia [Unknown]
  - Blood pressure abnormal [Recovering/Resolving]
  - Groin pain [Unknown]
  - Blood glucose increased [Unknown]
  - Prescribed underdose [Unknown]
  - Gait disturbance [Unknown]
  - Visual impairment [Not Recovered/Not Resolved]
  - Multiple sclerosis relapse [Unknown]
  - Gluten sensitivity [Unknown]
  - Feeling hot [Unknown]
  - Nausea [Unknown]
  - Multiple sclerosis [Unknown]
  - Memory impairment [Recovered/Resolved]
  - Balance disorder [Unknown]
  - Emotional disorder [Unknown]
  - Anaemia [Unknown]
  - Feeling cold [Unknown]
  - Tooth fracture [Recovered/Resolved]
  - Hypersensitivity [Unknown]
  - Alopecia [Unknown]
  - Pruritus [Not Recovered/Not Resolved]
  - Musculoskeletal stiffness [Unknown]
  - Lactose intolerance [Unknown]
  - Bacterial infection [Unknown]
  - Fall [Recovered/Resolved]
  - Skin plaque [Unknown]
  - Depressed mood [Unknown]
  - Urinary tract infection [Recovered/Resolved]
  - Gastrointestinal infection [Not Recovered/Not Resolved]
  - Inappropriate schedule of product administration [Unknown]
  - Spinal cord herniation [Not Recovered/Not Resolved]
  - Loss of consciousness [Unknown]
  - Pneumonia [Recovered/Resolved]
  - Intestinal obstruction [Recovering/Resolving]
  - Spinal osteoarthritis [Unknown]
  - Fatigue [Recovering/Resolving]
  - General physical health deterioration [Unknown]
  - Skin discolouration [Unknown]
  - Urinary tract infection [Not Recovered/Not Resolved]
  - Malaise [Unknown]
  - Dizziness [Recovering/Resolving]
  - Epilepsy [Unknown]
  - Chills [Unknown]
  - Fall [Recovered/Resolved]
  - Raynaud^s phenomenon [Not Recovered/Not Resolved]
  - Cataract [Not Recovered/Not Resolved]
  - Body height decreased [Unknown]
  - Wound [Unknown]
  - Cyanosis [Unknown]
  - Myelodysplastic syndrome [Recovering/Resolving]
  - Cognitive disorder [Recovered/Resolved]
  - Sluggishness [Unknown]
  - Arthritis [Not Recovered/Not Resolved]
  - Swelling [Unknown]
  - Headache [Not Recovered/Not Resolved]
  - Weight fluctuation [Unknown]
  - Pain [Not Recovered/Not Resolved]
  - Abdominal pain upper [Not Recovered/Not Resolved]
  - Constipation [Recovering/Resolving]
  - Rhinitis [Unknown]
  - Diarrhoea [Not Recovered/Not Resolved]

NARRATIVE: CASE EVENT DATE: 2014
